FAERS Safety Report 8898050 (Version 1)
Quarter: 2012Q4

REPORT INFORMATION
  Report Type: 
  Country: US (occurrence: US)
  Receive Date: 20121108
  Receipt Date: 20121108
  Transmission Date: 20130627
  Serious: No
  Sender: FDA-Public Use
  Company Number: US-AMGEN-USASP2012033380

PATIENT
  Sex: Male
  Weight: 87.08 kg

DRUGS (10)
  1. ENBREL [Suspect]
     Indication: PRODUCT USED FOR UNKNOWN INDICATION
     Dosage: 25 mg, 2 times/wk
     Route: 058
  2. XANAX [Concomitant]
     Dosage: 0.25 mg, UNK
  3. VOLTAREN [Concomitant]
     Dosage: 25 mg, UNK
  4. LITHIUM [Concomitant]
     Dosage: 150 mg, UNK
  5. METHOTREXATE [Concomitant]
     Dosage: 2.5 mg, UNK
  6. SYNTHROID [Concomitant]
     Dosage: 25 mug, UNK
  7. TRAZODONE [Concomitant]
     Dosage: 50 mg, UNK
  8. LISINOPRIL [Concomitant]
     Dosage: 2.5 mg, UNK
  9. ADDERALL [Concomitant]
     Dosage: 5 mg, UNK
  10. CALCIUM 500+D [Concomitant]

REACTIONS (2)
  - Injection site bruising [Unknown]
  - Injection site swelling [Unknown]
